FAERS Safety Report 23450860 (Version 1)
Quarter: 2024Q1

REPORT INFORMATION
  Report Type: Spontaneous
  Country: US (occurrence: None)
  Receive Date: 20240126
  Receipt Date: 20240126
  Transmission Date: 20240409
  Serious: Yes (Other)
  Sender: FDA-Public Use
  Company Number: None

PATIENT
  Age: 78 Year
  Sex: Female
  Weight: 64 kg

DRUGS (1)
  1. LENALIDOMIDE [Suspect]
     Active Substance: LENALIDOMIDE
     Indication: Plasma cell myeloma
     Dosage: FREQUENCY : DAILY;?
     Route: 048
     Dates: start: 20240125, end: 20240125

REACTIONS (7)
  - Chest pain [None]
  - Palpitations [None]
  - Dyspnoea [None]
  - Heart rate increased [None]
  - Panic attack [None]
  - Supraventricular tachycardia [None]
  - Supraventricular tachycardia [None]

NARRATIVE: CASE EVENT DATE: 20240125
